FAERS Safety Report 8315573-6 (Version None)
Quarter: 2012Q2

REPORT INFORMATION
  Report Type: 
  Country: None (occurrence: None)
  Receive Date: 20120426
  Receipt Date: 20120416
  Transmission Date: 20120825
  Serious: Yes (Death, Other)
  Sender: FDA-Public Use
  Company Number: JP-ROCHE-1016321

PATIENT
  Sex: Male

DRUGS (5)
  1. PROGRAF [Concomitant]
     Route: 048
     Dates: start: 20090724, end: 20090917
  2. PROGRAF [Concomitant]
     Route: 048
     Dates: start: 20090918
  3. ACTEMRA [Suspect]
     Indication: RHEUMATOID ARTHRITIS
     Route: 041
     Dates: start: 20090626
  4. PROGRAF [Concomitant]
     Indication: RHEUMATOID ARTHRITIS
     Route: 048
     Dates: end: 20090723
  5. PREDNISOLONE [Concomitant]
     Indication: RHEUMATOID ARTHRITIS
     Route: 048

REACTIONS (3)
  - INFECTION [None]
  - ILEUS PARALYTIC [None]
  - CARDIAC DISORDER [None]
